FAERS Safety Report 14920677 (Version 3)
Quarter: 2018Q2

REPORT INFORMATION
  Report Type: Spontaneous
  Country: US (occurrence: US)
  Receive Date: 20180521
  Receipt Date: 20180618
  Transmission Date: 20180711
  Serious: Yes (Hospitalization, Other)
  Sender: FDA-Public Use
  Company Number: US-COOPERSURGICAL, INC.-US-2018CPS031967

PATIENT

DRUGS (1)
  1. PARAGARD T 380A [Suspect]
     Active Substance: COPPER
     Indication: CONTRACEPTION
     Dosage: UNK
     Route: 015
     Dates: start: 20121024, end: 20180430

REACTIONS (7)
  - Pain [Recovered/Resolved]
  - Coital bleeding [Recovering/Resolving]
  - Device issue [Unknown]
  - Abdominal pain lower [Recovered/Resolved]
  - Device expulsion [None]
  - Device breakage [Unknown]
  - Pelvic pain [Recovering/Resolving]

NARRATIVE: CASE EVENT DATE: 201706
